FAERS Safety Report 8173200-5 (Version None)
Quarter: 2012Q1

REPORT INFORMATION
  Report Type: 
  Country: None (occurrence: None)
  Receive Date: 20120229
  Receipt Date: 20110728
  Transmission Date: 20120608
  Serious: No
  Sender: FDA-Public Use
  Company Number: US-GLAXOSMITHKLINE-A0939560A

PATIENT
  Age: 48 Year
  Sex: Female

DRUGS (2)
  1. IMITREX [Suspect]
     Indication: PRODUCT USED FOR UNKNOWN INDICATION
     Route: 058
     Dates: start: 20081203
  2. GSK AUTOINJECTOR [Suspect]

REACTIONS (1)
  - MALAISE [None]
